FAERS Safety Report 21026114 (Version 3)
Quarter: 2022Q4

REPORT INFORMATION
  Report Type: Spontaneous
  Country: US (occurrence: US)
  Receive Date: 20220630
  Receipt Date: 20221017
  Transmission Date: 20230113
  Serious: No
  Sender: FDA-Public Use
  Company Number: US-BIOGEN-2022BI01135708

PATIENT
  Sex: Male

DRUGS (5)
  1. TECFIDERA [Suspect]
     Active Substance: DIMETHYL FUMARATE
     Indication: Multiple sclerosis
     Route: 050
     Dates: end: 20220422
  2. TECFIDERA [Suspect]
     Active Substance: DIMETHYL FUMARATE
     Route: 050
     Dates: start: 202201, end: 202207
  3. GLUCOSAMINE [Concomitant]
     Active Substance: GLUCOSAMINE
     Route: 050
  4. CHONDROITIN [Concomitant]
     Active Substance: CHONDROITIN
     Route: 050
  5. PRILOSEC [Concomitant]
     Active Substance: OMEPRAZOLE MAGNESIUM
     Route: 050

REACTIONS (7)
  - Multiple sclerosis relapse [Not Recovered/Not Resolved]
  - Abdominal discomfort [Unknown]
  - Chest pain [Unknown]
  - Drug intolerance [Unknown]
  - Gastric disorder [Recovered/Resolved]
  - Flushing [Unknown]
  - Nausea [Unknown]
